FAERS Safety Report 6292413-0 (Version None)
Quarter: 2009Q3

REPORT INFORMATION
  Report Type: 
  Country: None (occurrence: None)
  Receive Date: 20090731
  Receipt Date: 20090724
  Transmission Date: 20100115
  Serious: Yes (Hospitalization)
  Sender: FDA-Public Use
  Company Number: PHBS2007JP20904

PATIENT
  Sex: Female

DRUGS (16)
  1. NEORAL [Suspect]
     Indication: NEPHRITIS
     Dosage: 20 MG, BID
     Route: 048
     Dates: start: 20071031, end: 20071112
  2. NEORAL [Suspect]
     Dosage: 60 MG/DAY
     Route: 048
     Dates: start: 20071113, end: 20071122
  3. NEORAL [Suspect]
     Dosage: 80 MG/DAY
     Route: 048
     Dates: start: 20071123, end: 20071128
  4. NEORAL [Suspect]
     Dosage: 50 MG, BID
     Route: 048
     Dates: start: 20071129, end: 20071211
  5. HEPARIN [Concomitant]
     Dosage: 3600 IU
     Route: 065
     Dates: start: 20071031, end: 20071206
  6. WARFARIN SODIUM [Concomitant]
     Dosage: 0.5 MG/ DAY
     Route: 048
     Dates: start: 20071206
  7. ALFAROL [Concomitant]
     Dosage: 0.25 UG/DAY
     Route: 048
     Dates: start: 20071106
  8. BONALON [Concomitant]
     Dosage: 5 MG
     Route: 048
     Dates: start: 20071106, end: 20080317
  9. RENIVACE [Concomitant]
     Dosage: 2.5 MG/ DAY
     Route: 048
     Dates: start: 20071113
  10. RENIVACE [Concomitant]
     Dosage: 1.25 MG
     Route: 048
     Dates: start: 20070827
  11. PREDNISOLONE [Concomitant]
     Dosage: 1 MG/KG/DAY
     Dates: start: 20070817
  12. PREDNISOLONE [Concomitant]
     Dosage: 20 MG
     Route: 048
     Dates: start: 20070817
  13. PREDNISOLONE [Concomitant]
     Dosage: 20 MG/ DAY
     Route: 048
     Dates: start: 20071113
  14. MUCOSOLATE [Concomitant]
     Dosage: 20 MG
     Route: 048
     Dates: start: 20071001
  15. CARBOCISTEINE [Concomitant]
     Dosage: 600 MG
     Route: 048
     Dates: start: 20071001
  16. MIZORIBINE [Concomitant]
     Dosage: UNK
     Dates: start: 20080104

REACTIONS (8)
  - BLOOD IMMUNOGLOBULIN G INCREASED [None]
  - BLOOD LACTATE DEHYDROGENASE INCREASED [None]
  - CONTUSION [None]
  - HAEMORRHAGE SUBCUTANEOUS [None]
  - IDIOPATHIC THROMBOCYTOPENIC PURPURA [None]
  - MEGAKARYOCYTES INCREASED [None]
  - PROTEIN URINE PRESENT [None]
  - THROMBOCYTOPENIA [None]
